FAERS Safety Report 6294120-7 (Version None)
Quarter: 2009Q3

REPORT INFORMATION
  Report Type: 
  Country: None (occurrence: None)
  Receive Date: 20090803
  Receipt Date: 20081202
  Transmission Date: 20100115
  Serious: No
  Sender: FDA-Public Use
  Company Number: A0758908A

PATIENT
  Age: 65 Year
  Sex: Male

DRUGS (1)
  1. NICORETTE [Suspect]
     Dates: start: 20080930, end: 20081128

REACTIONS (4)
  - DRY SKIN [None]
  - HYPERSENSITIVITY [None]
  - PRURITUS GENERALISED [None]
  - SWELLING [None]
